FAERS Safety Report 10917970 (Version 1)
Quarter: 2015Q1

REPORT INFORMATION
  Report Type: Spontaneous
  Country: US (occurrence: US)
  Receive Date: 20150316
  Receipt Date: 20150316
  Transmission Date: 20150721
  Serious: Yes (Death, Hospitalization)
  Sender: FDA-Public Use
  Company Number: US-ENDO PHARMACEUTICALS INC.-LEVE20140014

PATIENT
  Age: 55 Year
  Sex: Female

DRUGS (2)
  1. LEVETIRACETAM ORAL SOLUTION 100 MG/ML [Suspect]
     Active Substance: LEVETIRACETAM
     Indication: BRAIN NEOPLASM
     Route: 048
  2. LEVETIRACETAM TABLETS 750MG [Suspect]
     Active Substance: LEVETIRACETAM
     Indication: BRAIN NEOPLASM
     Route: 048

REACTIONS (3)
  - Death [Fatal]
  - Seizure [Unknown]
  - Underdose [Not Recovered/Not Resolved]

NARRATIVE: CASE EVENT DATE: 201408
